FAERS Safety Report 8178276 (Version 4)
Quarter: 2013Q1

REPORT INFORMATION
  Report Type: Spontaneous
  Country: US (occurrence: US)
  Receive Date: 20111012
  Receipt Date: 20130110
  Transmission Date: 20140127
  Serious: No
  Sender: FDA-Public Use
  Company Number: US-ASTRAZENECA-2011SE34823

PATIENT
  Age: 89 Year
  Sex: Female

DRUGS (3)
  1. ATACAND [Suspect]
     Route: 048
  2. TOPROL XL [Suspect]
     Route: 048
  3. ARICEPT [Concomitant]

REACTIONS (5)
  - Dementia [Unknown]
  - Confusional state [Unknown]
  - Paranoia [Unknown]
  - Hallucination [Unknown]
  - Dementia Alzheimer^s type [Unknown]
